FAERS Safety Report 22630550 (Version 1)
Quarter: 2023Q2

REPORT INFORMATION
  Report Type: Spontaneous
  Country: CN (occurrence: CN)
  Receive Date: 20230622
  Receipt Date: 20230622
  Transmission Date: 20230721
  Serious: Yes (Other)
  Sender: FDA-Public Use
  Company Number: CN-OTSUKA-2023_015718

PATIENT
  Age: 9 Year
  Sex: Female
  Weight: 22.5 kg

DRUGS (2)
  1. ABILIFY [Suspect]
     Active Substance: ARIPIPRAZOLE
     Indication: Tourette^s disorder
     Dosage: 2 ML, QD (AT NIGHT)
     Route: 048
     Dates: start: 20230608
  2. ABILIFY [Suspect]
     Active Substance: ARIPIPRAZOLE
     Dosage: 20 ML, QD (AT NIGHT)
     Route: 048
     Dates: start: 20230609, end: 20230609

REACTIONS (4)
  - Abdominal pain [Recovered/Resolved]
  - Asthenia [Recovering/Resolving]
  - Overdose [Unknown]
  - Product use in unapproved indication [Unknown]

NARRATIVE: CASE EVENT DATE: 20230608
